FAERS Safety Report 19688753 (Version 1)
Quarter: 2021Q3

REPORT INFORMATION
  Report Type: Spontaneous
  Country: US (occurrence: US)
  Receive Date: 20210811
  Receipt Date: 20210811
  Transmission Date: 20211014
  Serious: No
  Sender: FDA-Public Use
  Company Number: US-SA-2021SA262034

PATIENT
  Sex: Male

DRUGS (3)
  1. SINGULAIR [Concomitant]
     Active Substance: MONTELUKAST SODIUM
     Dosage: 10 MG
  2. DUPIXENT [Suspect]
     Active Substance: DUPILUMAB
     Indication: NASAL POLYPS
     Route: 058
  3. PULMICORT FLEXHALER [Concomitant]
     Active Substance: BUDESONIDE

REACTIONS (3)
  - Rash [Unknown]
  - Surgery [Unknown]
  - Dry skin [Unknown]

NARRATIVE: CASE EVENT DATE: 202107
